FAERS Safety Report 6781194-X (Version None)
Quarter: 2010Q2

REPORT INFORMATION
  Report Type: 
  Country: None (occurrence: None)
  Receive Date: 20100621
  Receipt Date: 20100610
  Transmission Date: 20101027
  Serious: Yes (Life-Threatening, Hospitalization, Other)
  Sender: FDA-Public Use
  Company Number: JP-PFIZER INC-2009263131

PATIENT
  Age: 80 Year
  Sex: Male
  Weight: 65.6 kg

DRUGS (9)
  1. SUNITINIB MALATE [Suspect]
     Indication: RENAL CELL CARCINOMA
     Dosage: 50 MG, 1X/DAY
     Route: 048
     Dates: start: 20090611, end: 20090704
  2. ALLEGRA [Concomitant]
     Dosage: UNK
     Route: 048
  3. CALBLOCK [Concomitant]
     Dosage: UNK
     Route: 048
  4. BLOPRESS [Concomitant]
     Dosage: UNK
     Route: 048
     Dates: start: 20090617
  5. THYRADIN S [Concomitant]
     Dosage: UNK
     Route: 048
     Dates: start: 20090627
  6. GENTAMICIN [Concomitant]
     Dosage: UNK
     Route: 062
     Dates: start: 20090630, end: 20090720
  7. ANTEBATE [Concomitant]
     Dosage: UNK
     Route: 062
  8. NIZORAL [Concomitant]
     Dosage: UNK
     Route: 061
  9. FLOMOX [Concomitant]
     Dosage: UNK
     Route: 048
     Dates: start: 20090630, end: 20090715

REACTIONS (2)
  - ANAEMIA [None]
  - ATRIOVENTRICULAR BLOCK [None]
